FAERS Safety Report 10141264 (Version 2)
Quarter: 2014Q2

REPORT INFORMATION
  Report Type: Spontaneous
  Country: GB (occurrence: GB)
  Receive Date: 20140429
  Receipt Date: 20140429
  Transmission Date: 20141212
  Serious: Yes (Other)
  Sender: FDA-Public Use
  Company Number: CHPA2014GB005143

PATIENT
  Sex: Female

DRUGS (1)
  1. BOOTS NICASSIST 2MG COMPRESSED LOZENGE [Suspect]
     Dosage: 36 DF, UNK
     Route: 048

REACTIONS (3)
  - Dyspnoea [Recovered/Resolved]
  - Sneezing [Unknown]
  - Throat irritation [Unknown]
